FAERS Safety Report 7345376-0 (Version None)
Quarter: 2011Q1

REPORT INFORMATION
  Report Type: 
  Country: None (occurrence: None)
  Receive Date: 20110310
  Receipt Date: 20110304
  Transmission Date: 20110831
  Serious: Yes (Death)
  Sender: FDA-Public Use
  Company Number: PHHY2011US11347

PATIENT
  Sex: Male

DRUGS (22)
  1. HYDROCODONE BITARTRATE [Concomitant]
     Dosage: 5 TO 500 MG Q4H PRN
     Route: 048
  2. METFORMIN HYDROCHLORIDE [Concomitant]
     Dosage: 1000 MG, BID
     Route: 048
  3. BENADRYL [Concomitant]
     Dosage: 25 MG, ONE CAPSULE, PRN
     Route: 048
  4. TRAMADOL HCL [Concomitant]
     Dosage: 50 MG, Q4H
     Route: 048
  5. GLEEVEC [Suspect]
     Indication: CHRONIC MYELOID LEUKAEMIA (IN REMISSION)
     Dosage: 400 MG,DAILY
     Route: 048
     Dates: start: 20100521
  6. PRAVASTATIN SODIUM [Concomitant]
     Dosage: 40 MG, QHS
     Route: 048
  7. TRAMADOL [Concomitant]
     Dosage: 50 MG, BID
  8. FISH OIL [Concomitant]
     Dosage: 1000 MG, DAILY
     Route: 048
  9. MIRALAX [Concomitant]
     Dosage: 17 G/DOSE
  10. RANEXA [Concomitant]
     Dosage: 500 MG, DAILY
     Route: 048
  11. GABAPENTIN [Concomitant]
     Dosage: 300 MG, 2 QHS, 1 NOON
     Route: 048
  12. OMEPRAZOLE [Concomitant]
     Dosage: 20 MG, QD
     Route: 048
  13. SIMVASTATIN [Concomitant]
     Dosage: 40 MG, QD
     Route: 048
  14. ATROVENT [Concomitant]
     Dosage: 17 MCG, UNK
  15. ASPIRIN [Concomitant]
  16. COLCHICINE [Concomitant]
     Dosage: 0.6 MG, UNK
     Route: 048
  17. GLIPIZIDE [Concomitant]
     Dosage: 10 MG, BID
     Route: 048
  18. MILK OF MAGNESIA TAB [Concomitant]
     Dosage: 400 MG/5 ML, 1 TABLESPOON
     Route: 048
  19. NAPROXEN [Concomitant]
     Dosage: 500 MG, BID
     Route: 048
  20. ONDANSETRON HYDROCHLORIDE [Concomitant]
     Indication: NAUSEA
     Dosage: 8 MG, Q8H
  21. PROCHLORPERAZINE MALEATE [Concomitant]
     Indication: NAUSEA
     Dosage: 10 MG, Q6H
     Route: 048
  22. SUPPOSITOIRES A LA GLYCERINE ^GIFRER^ [Concomitant]

REACTIONS (16)
  - TREMOR [None]
  - NAUSEA [None]
  - SKIN EXFOLIATION [None]
  - HEART SOUNDS ABNORMAL [None]
  - CONCOMITANT DISEASE PROGRESSION [None]
  - FEELING ABNORMAL [None]
  - OXYGEN SATURATION DECREASED [None]
  - MYOCARDIAL INFARCTION [None]
  - DRY SKIN [None]
  - HYPOTENSION [None]
  - FRUSTRATION [None]
  - ACTIVITIES OF DAILY LIVING IMPAIRED [None]
  - DECREASED APPETITE [None]
  - GASTROINTESTINAL MOTILITY DISORDER [None]
  - ASTHENIA [None]
  - NOCTURIA [None]
